FAERS Safety Report 26072316 (Version 2)
Quarter: 2025Q4

REPORT INFORMATION
  Report Type: Spontaneous
  Country: EG (occurrence: EG)
  Receive Date: 20251120
  Receipt Date: 20251222
  Transmission Date: 20260117
  Serious: Yes (Other)
  Sender: NOVO NORDISK
  Company Number: EG-NOVOPROD-1551147

PATIENT
  Age: 508 Month
  Sex: Female
  Weight: 92 kg

DRUGS (2)
  1. LANTUS SOLOSTAR [Concomitant]
     Active Substance: INSULIN GLARGINE
     Indication: Type 1 diabetes mellitus
     Dosage: 24 IU, QD
     Route: 058
  2. ACTRAPID [Suspect]
     Active Substance: INSULIN HUMAN
     Indication: Type 1 diabetes mellitus
     Dosage: 58 IU, QD (20U MORNING, 24U MIDDAY AND 14U AT NIGHT)
     Route: 058

REACTIONS (8)
  - Diabetic hyperglycaemic coma [Recovered/Resolved]
  - Hypoglycaemic coma [Recovered/Resolved]
  - Drug dose omission by device [Unknown]
  - Device delivery system issue [Unknown]
  - Wrong technique in product usage process [Unknown]
  - Product storage error [Unknown]
  - Device issue [Unknown]
  - Hyperglycaemia [Recovered/Resolved]

NARRATIVE: CASE EVENT DATE: 20250501
